FAERS Safety Report 19151410 (Version 3)
Quarter: 2021Q2

REPORT INFORMATION
  Report Type: Other
  Country: US (occurrence: US)
  Receive Date: 20210419
  Receipt Date: 20210518
  Transmission Date: 20210717
  Serious: Yes (Hospitalization)
  Sender: FDA-Public Use
  Company Number: US-ROCHE-2809348

PATIENT
  Sex: Female

DRUGS (5)
  1. PEGASYS [Suspect]
     Active Substance: PEGINTERFERON ALFA-2A
  2. PEGASYS [Suspect]
     Active Substance: PEGINTERFERON ALFA-2A
     Indication: POLYCYTHAEMIA VERA
     Dosage: VIAL
     Route: 058
  3. PEGASYS [Suspect]
     Active Substance: PEGINTERFERON ALFA-2A
  4. METOPROLOL. [Concomitant]
     Active Substance: METOPROLOL
  5. LOSARTAN. [Concomitant]
     Active Substance: LOSARTAN

REACTIONS (5)
  - Off label use [Unknown]
  - Muscular weakness [Unknown]
  - Memory impairment [Unknown]
  - Throat clearing [Unknown]
  - Illness [Unknown]
